FAERS Safety Report 4382598-5 (Version None)
Quarter: 2004Q2

REPORT INFORMATION
  Report Type: 
  Country: None (occurrence: None)
  Receive Date: 20040622
  Receipt Date: 20030130
  Transmission Date: 20050107
  Serious: Yes (Hospitalization, Other)
  Sender: FDA-Public Use
  Company Number: US-MERCK-0302USA00107

PATIENT
  Age: 76 Year
  Sex: Male
  Weight: 66 kg

DRUGS (7)
  1. DARVOCET-N 100 [Concomitant]
     Route: 065
  2. LANOXIN [Concomitant]
     Indication: CARDIOMEGALY
     Route: 065
     Dates: start: 20001120
  3. LASIX [Concomitant]
     Indication: CARDIOMEGALY
     Route: 065
     Dates: start: 20001120
  4. K-DUR 10 [Concomitant]
     Route: 065
  5. PROPOXYPHENE HYDROCHLORIDE [Concomitant]
     Indication: ARTHRALGIA
     Route: 065
     Dates: start: 20001220
  6. VIOXX [Suspect]
     Indication: RHEUMATOID ARTHRITIS
     Route: 048
     Dates: start: 19991222, end: 20010301
  7. VIOXX [Suspect]
     Indication: ARTHRALGIA
     Route: 048
     Dates: start: 19991222, end: 20010301

REACTIONS (15)
  - ABDOMINAL DISCOMFORT [None]
  - BRUNNER'S GLAND HYPERPLASIA [None]
  - CARDIAC DISORDER [None]
  - CARDIAC PACEMAKER INSERTION [None]
  - CATARACT [None]
  - DIARRHOEA [None]
  - DUODENITIS [None]
  - GASTRITIS [None]
  - GASTROINTESTINAL HAEMORRHAGE [None]
  - HAEMORRHOIDS [None]
  - HEART RATE IRREGULAR [None]
  - HIATUS HERNIA [None]
  - INJURY [None]
  - SUPRAVENTRICULAR TACHYCARDIA [None]
  - WEIGHT DECREASED [None]
